FAERS Safety Report 14688876 (Version 1)
Quarter: 2018Q1

REPORT INFORMATION
  Report Type: Spontaneous
  Country: JP (occurrence: JP)
  Receive Date: 20180328
  Receipt Date: 20180328
  Transmission Date: 20180509
  Serious: Yes (Other)
  Sender: FDA-Public Use
  Company Number: JP-PFIZER INC-2018119950

PATIENT
  Age: 58 Year
  Sex: Male

DRUGS (4)
  1. EPIRUBICIN HCL [Concomitant]
     Active Substance: EPIRUBICIN HYDROCHLORIDE
     Indication: ENTEROPATHY-ASSOCIATED T-CELL LYMPHOMA
     Dosage: UNK
  2. METHOTREXATE SODIUM. [Suspect]
     Active Substance: METHOTREXATE SODIUM
     Indication: ENTEROPATHY-ASSOCIATED T-CELL LYMPHOMA
     Dosage: UNK
  3. ETOPOSIDE. [Concomitant]
     Active Substance: ETOPOSIDE
     Indication: ENTEROPATHY-ASSOCIATED T-CELL LYMPHOMA
     Dosage: UNK
  4. IFOSFAMIDE. [Concomitant]
     Active Substance: IFOSFAMIDE
     Indication: ENTEROPATHY-ASSOCIATED T-CELL LYMPHOMA
     Dosage: UNK

REACTIONS (2)
  - Acute kidney injury [Recovered/Resolved]
  - Drug level increased [Recovered/Resolved]
